FAERS Safety Report 9131889 (Version 1)
Quarter: 2013Q1

REPORT INFORMATION
  Report Type: Report from Study
  Country: US (occurrence: US)
  Receive Date: 20130301
  Receipt Date: 20130301
  Transmission Date: 20140127
  Serious: No
  Sender: FDA-Public Use
  Company Number: US-MYLANLABS-2012S1020206

PATIENT
  Age: 17 Year
  Sex: Male
  Weight: 63.5 kg

DRUGS (2)
  1. AMNESTEEM CAPSULES [Suspect]
     Indication: ACNE
     Route: 048
  2. AMNESTEEM CAPSULES [Suspect]
     Indication: ACNE
     Route: 048

REACTIONS (1)
  - Alopecia [Not Recovered/Not Resolved]
